FAERS Safety Report 8369194-X (Version None)
Quarter: 2012Q2

REPORT INFORMATION
  Report Type: 
  Country: None (occurrence: None)
  Receive Date: 20120518
  Receipt Date: 20120514
  Transmission Date: 20120825
  Serious: Yes (Hospitalization)
  Sender: FDA-Public Use
  Company Number: US-BAYER-2011-106009

PATIENT
  Age: 26 Year
  Sex: Female
  Weight: 86.168 kg

DRUGS (17)
  1. YASMIN [Suspect]
     Dosage: UNK
     Dates: start: 20090101, end: 20100101
  2. DROSPIRENONE AND ETHINYL ESTRADIOL [Suspect]
     Dosage: UNK
     Dates: start: 20090101, end: 20100101
  3. ZYRTEC [Concomitant]
  4. LORATADINE [Concomitant]
  5. ASCORBIC ACID [Concomitant]
  6. NSAID'S [Concomitant]
  7. YAZ [Suspect]
     Indication: AMENORRHOEA
     Dates: start: 20050101, end: 20080101
  8. MUCINEX [Concomitant]
     Dosage: UNK
     Route: 048
     Dates: start: 20100204
  9. IBUPROFEN [Concomitant]
     Dosage: 600 MG, UNK
     Route: 048
     Dates: start: 20100204
  10. ALBUTEROL [Concomitant]
     Dosage: UNK
     Dates: start: 20100204
  11. DIURETICS [Concomitant]
  12. YAZ [Suspect]
     Indication: DYSMENORRHOEA
     Dosage: UNK
     Dates: start: 20090101, end: 20100101
  13. SPIRONOLACTONE [Concomitant]
     Indication: POLYCYSTIC OVARIES
  14. YASMIN [Suspect]
     Indication: AMENORRHOEA
     Dates: start: 20050101, end: 20080101
  15. DROSPIRENONE AND ETHINYL ESTRADIOL [Suspect]
     Indication: AMENORRHOEA
     Dates: start: 20050101, end: 20080101
  16. CODEINE W/GUAIFENESIN [Concomitant]
     Dosage: UNK
     Route: 048
     Dates: start: 20100204
  17. METFORMIN HCL [Concomitant]
     Indication: POLYCYSTIC OVARIES

REACTIONS (8)
  - DEEP VEIN THROMBOSIS [None]
  - ANHEDONIA [None]
  - PAIN [None]
  - INJURY [None]
  - PULMONARY EMBOLISM [None]
  - EMOTIONAL DISTRESS [None]
  - ANXIETY [None]
  - GENERAL PHYSICAL HEALTH DETERIORATION [None]
